FAERS Safety Report 5807402-7 (Version None)
Quarter: 2008Q3

REPORT INFORMATION
  Report Type: 
  Country: None (occurrence: None)
  Receive Date: 20080709
  Receipt Date: 20080709
  Transmission Date: 20090109
  Serious: No
  Sender: FDA-Public Use
  Company Number: None

PATIENT
  Age: 80 Year
  Sex: Male
  Weight: 50.4 kg

DRUGS (2)
  1. ALENDRONATE SODIUM [Suspect]
     Dosage: 70 MG QWEEK PO
     Route: 048
     Dates: start: 20061101, end: 20080225
  2. PREDNISONE TAB [Suspect]
     Dosage: 5 MG BID PO
     Route: 048
     Dates: start: 20051109

REACTIONS (3)
  - GASTROINTESTINAL HAEMORRHAGE [None]
  - HYPOTENSION [None]
  - OESOPHAGITIS [None]
